FAERS Safety Report 21740932 (Version 1)
Quarter: 2022Q4

REPORT INFORMATION
  Report Type: Spontaneous
  Country: US (occurrence: None)
  Receive Date: 20221216
  Receipt Date: 20221216
  Transmission Date: 20230113
  Serious: Yes (Disabling)
  Sender: FDA-Public Use
  Company Number: None

PATIENT
  Age: 76 Year
  Sex: Male
  Weight: 70.2 kg

DRUGS (6)
  1. ROSUVASTATIN [Suspect]
     Active Substance: ROSUVASTATIN
     Indication: Low density lipoprotein increased
  2. rosuvastatin 10 [Concomitant]
  3. levothyroxine 112 [Concomitant]
  4. LOW DOSE ASPIRIN [Concomitant]
     Active Substance: ASPIRIN
  5. VITAMINS [Concomitant]
     Active Substance: VITAMINS
  6. D3 daily [Concomitant]

REACTIONS (1)
  - Neuropathy peripheral [None]

NARRATIVE: CASE EVENT DATE: 20221108
